FAERS Safety Report 16918498 (Version 1)
Quarter: 2019Q4

REPORT INFORMATION
  Report Type: Spontaneous
  Country: FR (occurrence: FR)
  Receive Date: 20191015
  Receipt Date: 20191015
  Transmission Date: 20200122
  Serious: Yes (Other)
  Sender: FDA-Public Use
  Company Number: FR-PFIZER INC-2019437867

PATIENT
  Age: 30 Year
  Sex: Male

DRUGS (3)
  1. CANNABIS [Suspect]
     Active Substance: CANNABIS SATIVA SUBSP. INDICA TOP
     Indication: DRUG ABUSE
     Dosage: 10 JOINTS A DAY
     Route: 055
  2. ALPRAZOLAM. [Suspect]
     Active Substance: ALPRAZOLAM
     Dosage: 15 MG DAILY, ALTERNATE DAY (30 TABLETS OF 0.5 MG FOR 2 DAYS)
     Route: 065
  3. TOBACCO [Suspect]
     Active Substance: TOBACCO LEAF
     Indication: TOBACCO USER
     Dosage: 1 PACKAGE / DAY
     Route: 055

REACTIONS (5)
  - Drug dependence [Not Recovered/Not Resolved]
  - Intentional overdose [Not Recovered/Not Resolved]
  - Epilepsy [Recovering/Resolving]
  - Drug withdrawal convulsions [Recovered/Resolved]
  - Alcohol abuse [Not Recovered/Not Resolved]

NARRATIVE: CASE EVENT DATE: 2017
